FAERS Safety Report 10283920 (Version 2)
Quarter: 2014Q4

REPORT INFORMATION
  Report Type: Spontaneous
  Country: US (occurrence: US)
  Receive Date: 20140708
  Receipt Date: 20141007
  Transmission Date: 20150528
  Serious: Yes (Hospitalization)
  Sender: FDA-Public Use
  Company Number: US-BAYER-2014-101146

PATIENT
  Age: 29 Year
  Sex: Female
  Weight: 81.63 kg

DRUGS (4)
  1. MULTIVITAMIN [Concomitant]
     Active Substance: VITAMINS
  2. SEASONIQUE [Concomitant]
     Active Substance: ETHINYL ESTRADIOL\LEVONORGESTREL
  3. MIRENA [Suspect]
     Active Substance: LEVONORGESTREL
     Indication: CONTRACEPTION
     Dosage: 20 MCG/24HR, CONT
     Route: 015
     Dates: start: 20120120, end: 20131031
  4. EFFEXOR [Concomitant]
     Active Substance: VENLAFAXINE HYDROCHLORIDE

REACTIONS (11)
  - Device issue [None]
  - Anger [None]
  - Pain [None]
  - Anxiety [None]
  - Injury [None]
  - Emotional disorder [None]
  - Uterine scar [None]
  - Uterine perforation [None]
  - Post-traumatic pain [None]
  - Depression [None]
  - Abnormal behaviour [None]

NARRATIVE: CASE EVENT DATE: 201202
